FAERS Safety Report 5915221-6 (Version None)
Quarter: 2008Q4

REPORT INFORMATION
  Report Type: 
  Country: None (occurrence: None)
  Receive Date: 20081010
  Receipt Date: 20080930
  Transmission Date: 20090506
  Serious: Yes (Hospitalization)
  Sender: FDA-Public Use
  Company Number: US-MERCK-0706USA03728

PATIENT
  Age: 72 Year
  Sex: Male

DRUGS (2)
  1. FOSAMAX [Suspect]
     Indication: OSTEOPOROSIS
     Route: 048
     Dates: start: 20010212, end: 20060829
  2. FOSAMAX [Suspect]
     Route: 048
     Dates: start: 19990104, end: 20010101

REACTIONS (35)
  - ANAEMIA [None]
  - ANXIETY [None]
  - BENIGN PROSTATIC HYPERPLASIA [None]
  - BLOOD CHOLESTEROL INCREASED [None]
  - BLOOD PRESSURE ORTHOSTATIC DECREASED [None]
  - BLOOD TRIGLYCERIDES INCREASED [None]
  - COUGH [None]
  - DEHYDRATION [None]
  - DENTAL CARIES [None]
  - DIABETES MELLITUS INADEQUATE CONTROL [None]
  - DYSLIPIDAEMIA [None]
  - EAR INFECTION [None]
  - EAR PAIN [None]
  - FACIAL PAIN [None]
  - FLUID INTAKE REDUCED [None]
  - GASTROOESOPHAGEAL REFLUX DISEASE [None]
  - HYPOTENSION [None]
  - INTERVERTEBRAL DISC DEGENERATION [None]
  - LOOSE TOOTH [None]
  - MAJOR DEPRESSION [None]
  - MASTICATION DISORDER [None]
  - MICTURITION DISORDER [None]
  - MUSCULOSKELETAL PAIN [None]
  - ORAL INFECTION [None]
  - OROPHARYNGEAL PAIN [None]
  - ORTHOSTATIC HYPOTENSION [None]
  - PAIN IN JAW [None]
  - PANIC ATTACK [None]
  - RECTAL HAEMORRHAGE [None]
  - SWELLING FACE [None]
  - TOOTH LOSS [None]
  - TYMPANIC MEMBRANE PERFORATION [None]
  - URETHRAL STENOSIS [None]
  - VITAMIN B12 DEFICIENCY [None]
  - WEIGHT DECREASED [None]
